FAERS Safety Report 7705820-3 (Version None)
Quarter: 2011Q3

REPORT INFORMATION
  Report Type: 
  Country: None (occurrence: None)
  Receive Date: 20110824
  Receipt Date: 20110815
  Transmission Date: 20111222
  Serious: Yes (Hospitalization)
  Sender: FDA-Public Use
  Company Number: CA-ELI_LILLY_AND_COMPANY-CA201108004621

PATIENT
  Sex: Female

DRUGS (14)
  1. ZYPREXA [Suspect]
     Dosage: 5 MG, QD
  2. TRIPHASIL-21 [Concomitant]
  3. EFFEXOR [Concomitant]
  4. SERZONE [Concomitant]
  5. MANERIX [Concomitant]
  6. SYNTHROID [Concomitant]
  7. REMERON [Concomitant]
  8. CLONAZEPAM [Concomitant]
  9. CELEXA [Concomitant]
  10. ZOLOFT [Concomitant]
  11. PAXIL CR [Concomitant]
  12. ZYPREXA [Suspect]
     Indication: MAJOR DEPRESSION
     Dosage: 2.5 MG, QD
  13. WELLBUTRIN [Concomitant]
  14. ESCITALOPRAM [Concomitant]

REACTIONS (8)
  - METABOLIC DISORDER [None]
  - WEIGHT INCREASED [None]
  - HYPOCALCAEMIA [None]
  - HYPERLIPIDAEMIA [None]
  - PANCREATITIS ACUTE [None]
  - PLEURAL EFFUSION [None]
  - BLOOD GLUCOSE INCREASED [None]
  - HYPERCHOLESTEROLAEMIA [None]
